FAERS Safety Report 8329105-X (Version None)
Quarter: 2012Q2

REPORT INFORMATION
  Report Type: 
  Country: None (occurrence: None)
  Receive Date: 20120502
  Receipt Date: 20120426
  Transmission Date: 20120825
  Serious: Yes (Death, Hospitalization, Other)
  Sender: FDA-Public Use
  Company Number: IT-PFIZER INC-2012104420

PATIENT
  Age: 80 Year
  Sex: Female

DRUGS (13)
  1. CANDESARTAN CILEXETIL [Concomitant]
     Dosage: 16 MG, UNK
  2. NATECAL D [Concomitant]
  3. MUSCORIL [Suspect]
     Indication: INTERVERTEBRAL DISC DISORDER
     Dosage: 4 MG TOTAL DOSE
     Route: 030
     Dates: start: 20120424, end: 20120424
  4. DEXAMETHASONE SODIUM PHOSPHATE [Suspect]
     Indication: INTERVERTEBRAL DISC DISORDER
     Dosage: 4 MG TOTAL DOSE
     Route: 030
     Dates: start: 20120424, end: 20120424
  5. AROMASIN [Concomitant]
  6. ESOMEPRAZOLE [Concomitant]
     Dosage: 40 MG, UNK
  7. PROPAFENONE HCL [Concomitant]
     Dosage: 625 MG, UNK
  8. ASPIRIN [Concomitant]
  9. TACHIDOL [Concomitant]
  10. ALENDRONATE SODIUM [Concomitant]
  11. COLECALCIFEROL [Concomitant]
  12. FELDENE [Suspect]
     Indication: INTERVERTEBRAL DISC DISORDER
     Dosage: 20 MG TOTAL DOSE
     Route: 030
     Dates: start: 20120424, end: 20120424
  13. LIDOCAINE HYDROCHLORIDE [Suspect]
     Indication: INTERVERTEBRAL DISC DISORDER
     Dosage: 40 MG TOTAL DOSE
     Route: 030
     Dates: start: 20120424, end: 20120424

REACTIONS (9)
  - PSYCHOMOTOR HYPERACTIVITY [None]
  - MYOCLONUS [None]
  - LOSS OF CONSCIOUSNESS [None]
  - CARDIOGENIC SHOCK [None]
  - HYPERTENSIVE CRISIS [None]
  - PAIN IN EXTREMITY [None]
  - CLONUS [None]
  - PARAESTHESIA [None]
  - TRANSAMINASES INCREASED [None]
